FAERS Safety Report 5172144-0 (Version None)
Quarter: 2006Q4

REPORT INFORMATION
  Report Type: 
  Country: None (occurrence: None)
  Receive Date: 20061205
  Receipt Date: 20061127
  Transmission Date: 20070319
  Serious: Yes (Hospitalization)
  Sender: FDA-Public Use
  Company Number: US-2006-007013

PATIENT
  Age: 42 Year
  Sex: Female

DRUGS (1)
  1. BETASERON [Suspect]
     Indication: MULTIPLE SCLEROSIS
     Dosage: 8 MIU, EVERY 2D, SUBCUTANEOUS
     Route: 058
     Dates: start: 20020615

REACTIONS (4)
  - ABDOMINAL DISTENSION [None]
  - CARDIAC VALVE DISEASE [None]
  - OEDEMA PERIPHERAL [None]
  - THERAPY NON-RESPONDER [None]
